FAERS Safety Report 7576660-3 (Version None)
Quarter: 2011Q2

REPORT INFORMATION
  Report Type: 
  Country: None (occurrence: None)
  Receive Date: 20110628
  Receipt Date: 20110118
  Transmission Date: 20111010
  Serious: Yes (Other)
  Sender: FDA-Public Use
  Company Number: US-BAYER-201028288NA

PATIENT
  Age: 38 Year
  Sex: Female
  Weight: 58.957 kg

DRUGS (4)
  1. ASCORBIC ACID [Concomitant]
  2. YASMIN [Suspect]
     Indication: CONTRACEPTION
     Dosage: UNK UNK, UNK
     Route: 048
     Dates: start: 20040101, end: 20080101
  3. NAPROXEN (ALEVE) [Concomitant]
  4. BELLADONNA AND DERIVATIVES [Concomitant]
     Dosage: UNK
     Dates: start: 20080101, end: 20080201

REACTIONS (7)
  - CHOLECYSTECTOMY [None]
  - CHOLESTEROSIS [None]
  - CHOLELITHIASIS [None]
  - FISTULA [None]
  - PAIN [None]
  - CHOLECYSTITIS CHRONIC [None]
  - IRRITABLE BOWEL SYNDROME [None]
